FAERS Safety Report 25821920 (Version 1)
Quarter: 2025Q3

REPORT INFORMATION
  Report Type: Spontaneous
  Country: US (occurrence: US)
  Receive Date: 20250919
  Receipt Date: 20250919
  Transmission Date: 20251021
  Serious: No
  Sender: SUNOVION
  Company Number: US-SMPA-2025SPA011641

PATIENT
  Age: 79 Year
  Sex: Female
  Weight: 51.701 kg

DRUGS (4)
  1. GEMTESA [Suspect]
     Active Substance: VIBEGRON
     Indication: Hypertonic bladder
     Route: 048
     Dates: start: 20250827, end: 20250906
  2. METOPROLOL [Concomitant]
     Active Substance: METOPROLOL
     Indication: Blood pressure increased
     Dosage: 25 MG, QD
  3. AMLODIPINE [Concomitant]
     Active Substance: AMLODIPINE BESYLATE
     Indication: Blood pressure increased
     Dosage: 10 MG, QD
  4. ROSUVASTATIN [Concomitant]
     Active Substance: ROSUVASTATIN
     Indication: Blood cholesterol abnormal

REACTIONS (8)
  - Drug hypersensitivity [Not Recovered/Not Resolved]
  - Mouth swelling [Unknown]
  - Taste disorder [Not Recovered/Not Resolved]
  - Dyspnoea [Unknown]
  - Eructation [Unknown]
  - Swollen tongue [Unknown]
  - Tongue discomfort [Not Recovered/Not Resolved]
  - Drug ineffective [Unknown]
